FAERS Safety Report 13130022 (Version 1)
Quarter: 2017Q1

REPORT INFORMATION
  Report Type: Spontaneous
  Country: US (occurrence: US)
  Receive Date: 20170119
  Receipt Date: 20170119
  Transmission Date: 20170428
  Serious: Yes (Death, Other)
  Sender: FDA-Public Use
  Company Number: US-LANNETT COMPANY, INC.-US-2017LAN000378

PATIENT
  Age: 79 Year
  Sex: Female

DRUGS (2)
  1. MORPHINE SULFATE. [Suspect]
     Active Substance: MORPHINE SULFATE
     Indication: PRODUCT USED FOR UNKNOWN INDICATION
     Dosage: UNK
     Route: 048
  2. PHENOBARBITAL. [Suspect]
     Active Substance: PHENOBARBITAL
     Indication: PRODUCT USED FOR UNKNOWN INDICATION
     Dosage: UNK
     Route: 048

REACTIONS (11)
  - Unresponsive to stimuli [Unknown]
  - Tachycardia [Unknown]
  - Intentional overdose [Fatal]
  - Pneumonia aspiration [Unknown]
  - Completed suicide [Fatal]
  - Hypotension [Unknown]
  - Toxicity to various agents [Fatal]
  - Hypoglycaemia [Unknown]
  - Lethargy [Unknown]
  - Drug screen positive [Unknown]
  - Pyrexia [Unknown]

NARRATIVE: CASE EVENT DATE: 2015
